FAERS Safety Report 21926441 (Version 1)
Quarter: 2023Q1

REPORT INFORMATION
  Report Type: Spontaneous
  Country: US (occurrence: None)
  Receive Date: 20230127
  Receipt Date: 20230127
  Transmission Date: 20230417
  Serious: Yes (Disabling)
  Sender: FDA-Public Use
  Company Number: None

PATIENT
  Age: 38 Year
  Sex: Female
  Weight: 61.65 kg

DRUGS (3)
  1. BUPROPION [Suspect]
     Active Substance: BUPROPION
  2. Skyla IUD Was on Wellbutrin 200 mg [Concomitant]
  3. VITAMIN D [Concomitant]
     Active Substance: VITAMIN D NOS

REACTIONS (6)
  - Heavy menstrual bleeding [None]
  - Heavy menstrual bleeding [None]
  - Anaemia [None]
  - Sexual dysfunction [None]
  - Amenorrhoea [None]
  - Menstruation irregular [None]

NARRATIVE: CASE EVENT DATE: 20221231
